FAERS Safety Report 8528743-9 (Version None)
Quarter: 2012Q3

REPORT INFORMATION
  Report Type: 
  Country: None (occurrence: None)
  Receive Date: 20120723
  Receipt Date: 20120716
  Transmission Date: 20120928
  Serious: Yes (Hospitalization)
  Sender: FDA-Public Use
  Company Number: IT-GE HEALTHCARE MEDICAL DIAGNOSTICS-OMPQ-NO-1207S-0786

PATIENT
  Sex: Male

DRUGS (1)
  1. OMNIPAQUE 140 [Suspect]
     Indication: PRODUCT USED FOR UNKNOWN INDICATION
     Route: 042
     Dates: start: 20120405, end: 20120405

REACTIONS (5)
  - HYPOTENSION [None]
  - PULMONARY OEDEMA [None]
  - ERYTHEMA [None]
  - MALAISE [None]
  - RESPIRATORY ARREST [None]
